FAERS Safety Report 10531169 (Version 2)
Quarter: 2014Q4

REPORT INFORMATION
  Report Type: Report from Study
  Country: US (occurrence: US)
  Receive Date: 20141021
  Receipt Date: 20141226
  Transmission Date: 20150529
  Serious: Yes (Hospitalization)
  Sender: FDA-Public Use
  Company Number: US-BRISTOL-MYERS SQUIBB COMPANY-21477617

PATIENT
  Sex: Female
  Weight: 128.34 kg

DRUGS (1)
  1. ABATACEPT [Suspect]
     Active Substance: ABATACEPT
     Indication: RHEUMATOID ARTHRITIS
     Dosage: LAST INJECTION ON 03OCT2014
     Route: 058

REACTIONS (2)
  - Red blood cell count decreased [Unknown]
  - Systemic lupus erythematosus [Unknown]
